FAERS Safety Report 23606805 (Version 3)
Quarter: 2024Q2

REPORT INFORMATION
  Report Type: Report from Study
  Country: JP (occurrence: None)
  Receive Date: 20240307
  Receipt Date: 20240618
  Transmission Date: 20240715
  Serious: Yes (Death, Hospitalization)
  Sender: FDA-Public Use
  Company Number: 2023A271009

PATIENT
  Age: 63 Year
  Sex: Male
  Weight: 63 kg

DRUGS (9)
  1. IMFINZI [Suspect]
     Active Substance: DURVALUMAB
     Indication: Hepatocellular carcinoma
     Dosage: DOSE UNKNOWN
     Route: 041
     Dates: start: 20230630, end: 20230728
  2. IMJUDO [Suspect]
     Active Substance: TREMELIMUMAB\TREMELIMUMAB-ACTL
     Indication: Hepatocellular carcinoma
     Dosage: DOSE UNKNOWN
     Route: 041
     Dates: start: 20230630, end: 20230630
  3. CEFOPERAZONE SODIUM\SULBACTAM SODIUM [Suspect]
     Active Substance: CEFOPERAZONE SODIUM\SULBACTAM SODIUM
     Indication: Cholangitis
     Dosage: DOSE UNKNOWN
     Route: 042
  4. PREDONINE [Suspect]
     Active Substance: PREDNISOLONE
     Indication: Immune-mediated enterocolitis
     Dates: start: 20230802, end: 20230805
  5. PREDONINE [Suspect]
     Active Substance: PREDNISOLONE
     Indication: Immune-mediated enterocolitis
     Dates: start: 20230806, end: 20230808
  6. PREDONINE [Suspect]
     Active Substance: PREDNISOLONE
     Indication: Immune-mediated enterocolitis
     Dates: start: 20230809, end: 20230813
  7. PREDONINE [Suspect]
     Active Substance: PREDNISOLONE
     Indication: Immune-mediated enterocolitis
     Dates: start: 20230814, end: 20230818
  8. PREDONINE [Suspect]
     Active Substance: PREDNISOLONE
     Indication: Immune-mediated enterocolitis
     Dates: start: 20230819, end: 20230829
  9. PREDONINE [Suspect]
     Active Substance: PREDNISOLONE
     Indication: Immune-mediated enterocolitis
     Dates: start: 20230830, end: 20230919

REACTIONS (5)
  - Clostridium difficile infection [Recovered/Resolved]
  - Interstitial lung disease [Fatal]
  - Immune-mediated enterocolitis [Recovering/Resolving]
  - Pneumocystis jirovecii pneumonia [Fatal]
  - Bacteraemia [Fatal]

NARRATIVE: CASE EVENT DATE: 20230730
